FAERS Safety Report 6215503-7 (Version None)
Quarter: 2009Q2

REPORT INFORMATION
  Report Type: 
  Country: None (occurrence: None)
  Receive Date: 20090603
  Receipt Date: 20090522
  Transmission Date: 20091009
  Serious: Yes (Hospitalization)
  Sender: FDA-Public Use
  Company Number: VAL_00275_2009

PATIENT
  Age: 80 Year
  Sex: Female

DRUGS (3)
  1. ROCALTROL [Suspect]
     Indication: OSTEOPOROSIS
     Dosage: (0.25 UG QD ORAL)
     Route: 048
     Dates: start: 20030101, end: 20090301
  2. CALTRATE + D /00944201/ [Concomitant]
  3. ADALAT [Concomitant]

REACTIONS (9)
  - ARTHRALGIA [None]
  - FEELING HOT [None]
  - HYPERHIDROSIS [None]
  - LOSS OF CONSCIOUSNESS [None]
  - MUSCULAR WEAKNESS [None]
  - POLLAKIURIA [None]
  - THIRST [None]
  - TYPE 2 DIABETES MELLITUS [None]
  - VERTIGO [None]
